FAERS Safety Report 8508844-1 (Version None)
Quarter: 2012Q3

REPORT INFORMATION
  Report Type: 
  Country: None (occurrence: None)
  Receive Date: 20120713
  Receipt Date: 20120710
  Transmission Date: 20120928
  Serious: Yes (Other)
  Sender: FDA-Public Use
  Company Number: US-PFIZER INC-2012098518

PATIENT
  Sex: Female
  Weight: 90.7 kg

DRUGS (2)
  1. CELEBREX [Suspect]
     Indication: ARTHRALGIA
     Dosage: 1X/DAY
     Route: 048
  2. CELEBREX [Suspect]
     Indication: CARTILAGE INJURY

REACTIONS (3)
  - SWELLING FACE [None]
  - DRUG HYPERSENSITIVITY [None]
  - LOCAL SWELLING [None]
